FAERS Safety Report 10761860 (Version 2)
Quarter: 2015Q1

REPORT INFORMATION
  Report Type: Spontaneous
  Country: US (occurrence: US)
  Receive Date: 20150204
  Receipt Date: 20150204
  Transmission Date: 20150721
  Serious: Yes (Other)
  Sender: FDA-Public Use
  Company Number: US-JNJFOC-20150116574

PATIENT
  Age: 20 Year
  Sex: Female
  Weight: 48.54 kg

DRUGS (2)
  1. STELARA [Suspect]
     Active Substance: USTEKINUMAB
     Indication: PSORIASIS
     Route: 058
     Dates: start: 2014
  2. STELARA [Suspect]
     Active Substance: USTEKINUMAB
     Indication: PSORIASIS
     Route: 058
     Dates: start: 201410

REACTIONS (4)
  - Asthma [Recovered/Resolved]
  - Rash [Not Recovered/Not Resolved]
  - Mumps [Not Recovered/Not Resolved]
  - Expired product administered [Unknown]

NARRATIVE: CASE EVENT DATE: 201410
